FAERS Safety Report 17199462 (Version 1)
Quarter: 2019Q4

REPORT INFORMATION
  Report Type: Spontaneous
  Country: US (occurrence: US)
  Receive Date: 20191226
  Receipt Date: 20191226
  Transmission Date: 20200122
  Serious: Yes (Other)
  Sender: FDA-Public Use
  Company Number: US-ABBVIE-19K-163-3202130-00

PATIENT
  Sex: Male

DRUGS (1)
  1. SYNTHROID [Suspect]
     Active Substance: LEVOTHYROXINE SODIUM
     Indication: PRODUCT USED FOR UNKNOWN INDICATION
     Route: 048

REACTIONS (8)
  - Thyroid neoplasm [Unknown]
  - Blood zinc abnormal [Unknown]
  - Thyroid cancer [Unknown]
  - Osteopenia [Unknown]
  - Blood calcium abnormal [Unknown]
  - Osteoarthritis [Unknown]
  - Vitamin C abnormal [Unknown]
  - Feeling abnormal [Unknown]
